FAERS Safety Report 4415049-2 (Version None)
Quarter: 2004Q3

REPORT INFORMATION
  Report Type: 
  Country: None (occurrence: None)
  Receive Date: 20040730
  Receipt Date: 20040719
  Transmission Date: 20050211
  Serious: Yes (Other)
  Sender: FDA-Public Use
  Company Number: HQWYE392023JUL04

PATIENT
  Sex: Female

DRUGS (2)
  1. PREMARIN [Suspect]
  2. MEDROXYPROGESTERONE ACETATE [Suspect]

REACTIONS (3)
  - ADENOCARCINOMA [None]
  - CEREBROVASCULAR ACCIDENT [None]
  - METASTASES TO LYMPH NODES [None]
